FAERS Safety Report 7798029-9 (Version None)
Quarter: 2011Q4

REPORT INFORMATION
  Report Type: 
  Country: None (occurrence: None)
  Receive Date: 20111005
  Receipt Date: 20110923
  Transmission Date: 20120403
  Serious: Yes (Hospitalization, Other)
  Sender: FDA-Public Use
  Company Number: US-ELI_LILLY_AND_COMPANY-US201109007485

PATIENT
  Sex: Male

DRUGS (9)
  1. FORTEO [Suspect]
     Indication: OSTEOPOROSIS
     Dosage: 20 UG, QD
     Dates: start: 20110525, end: 20110821
  2. CHLORDIAZEPOXIDE [Concomitant]
     Dosage: 1 DF, TID
  3. SUCRALFATE [Concomitant]
     Dosage: 1 DF, TID
  4. PRAVASTATIN SODIUM [Concomitant]
     Dosage: 1 DF, QD
  5. GABAPENTIN [Concomitant]
     Dosage: 1 DF, QD
  6. PROTONIX [Concomitant]
     Dosage: 1 DF, BID
  7. KEPPRA [Concomitant]
     Dosage: 1 DF, BID
  8. SERTRALINE HYDROCHLORIDE [Concomitant]
     Dosage: 1 DF, QD
  9. FINASTERIDE [Concomitant]
     Dosage: 1 DF, QD

REACTIONS (16)
  - CONVULSION [None]
  - OESOPHAGEAL DISORDER [None]
  - ERYTHEMA [None]
  - HEARING IMPAIRED [None]
  - AUTOIMMUNE DISORDER [None]
  - AURICULAR SWELLING [None]
  - GASTRIC DISORDER [None]
  - FOREIGN BODY [None]
  - GAIT DISTURBANCE [None]
  - HAEMATEMESIS [None]
  - TYMPANIC MEMBRANE DISORDER [None]
  - ABNORMAL BEHAVIOUR [None]
  - MENTAL DISORDER [None]
  - GASTROOESOPHAGEAL REFLUX DISEASE [None]
  - TINNITUS [None]
  - DEPRESSED MOOD [None]
